FAERS Safety Report 16423245 (Version 1)
Quarter: 2019Q2

REPORT INFORMATION
  Report Type: Spontaneous
  Country: GB (occurrence: GB)
  Receive Date: 20190612
  Receipt Date: 20190612
  Transmission Date: 20190711
  Serious: Yes (Death, Hospitalization)
  Sender: FDA-Public Use
  Company Number: GB-ALLERGAN-1924165US

PATIENT
  Sex: Female

DRUGS (8)
  1. PREDNISOLONE UNK [Suspect]
     Active Substance: PREDNISOLONE
     Indication: PYODERMA GANGRENOSUM
     Dosage: UNK
     Dates: end: 20180501
  2. CABOMETYX [Suspect]
     Active Substance: CABOZANTINIB S-MALATE
     Dosage: 60 MG, QD
     Route: 048
     Dates: end: 20170301
  3. FOSTAIR [Concomitant]
     Active Substance: BECLOMETHASONE\FORMOTEROL
  4. CABOMETYX [Suspect]
     Active Substance: CABOZANTINIB S-MALATE
     Indication: RENAL CELL CARCINOMA
     Dosage: 40 MG, QD
     Route: 048
     Dates: start: 20170301, end: 20180504
  5. OMEPRAZOL                          /00661201/ [Concomitant]
     Active Substance: OMEPRAZOLE
  6. DEX UNK [Suspect]
     Active Substance: UNSPECIFIED INGREDIENT
     Indication: PYODERMA GANGRENOSUM
     Dosage: UNK
     Dates: start: 20180501
  7. ATORVASTATIN [Concomitant]
     Active Substance: ATORVASTATIN
  8. LANSOPRAZOLE. [Concomitant]
     Active Substance: LANSOPRAZOLE

REACTIONS (5)
  - Gastrointestinal perforation [Fatal]
  - Abdominal pain [Unknown]
  - Product use in unapproved indication [Unknown]
  - Constipation [Unknown]
  - Asthenia [Unknown]

NARRATIVE: CASE EVENT DATE: 20180501
